FAERS Safety Report 15133455 (Version 8)
Quarter: 2019Q3

REPORT INFORMATION
  Report Type: Spontaneous
  Country: US (occurrence: US)
  Receive Date: 20180712
  Receipt Date: 20190705
  Transmission Date: 20191004
  Serious: No
  Sender: FDA-Public Use
  Company Number: US-PFIZER INC-2018279891

PATIENT
  Age: 60 Year
  Sex: Male
  Weight: 122.86 kg

DRUGS (2)
  1. LYRICA [Suspect]
     Active Substance: PREGABALIN
     Indication: NEUROPATHY PERIPHERAL
     Dosage: 300 MG, UNK
  2. LYRICA [Suspect]
     Active Substance: PREGABALIN
     Indication: AUTONOMIC NEUROPATHY
     Dosage: 300 MG, 4X/DAY
     Route: 048
     Dates: start: 20111019

REACTIONS (7)
  - Fall [Unknown]
  - Joint injury [Unknown]
  - Off label use [Unknown]
  - Pain in extremity [Unknown]
  - Prescribed overdose [Unknown]
  - Pain [Unknown]
  - Product use in unapproved indication [Unknown]

NARRATIVE: CASE EVENT DATE: 20111019
